FAERS Safety Report 18041104 (Version 1)
Quarter: 2020Q3

REPORT INFORMATION
  Report Type: Report from Study
  Country: EG (occurrence: EG)
  Receive Date: 20200718
  Receipt Date: 20200718
  Transmission Date: 20201103
  Serious: Yes (Other)
  Sender: FDA-Public Use
  Company Number: NVSC2020EG199704

PATIENT
  Age: 16 Year
  Sex: Male
  Weight: 57 kg

DRUGS (7)
  1. ZINC. [Concomitant]
     Active Substance: ZINC
     Indication: PRODUCT USED FOR UNKNOWN INDICATION
     Dosage: UNK UNK, QD (STARTED IN THE LAST 3 MONTHS OF THE TREATMENT TILL FINISHING THE PACKAGE AFTER STOPPING
     Route: 065
  2. OSSOFORTIN [Concomitant]
     Indication: PRODUCT USED FOR UNKNOWN INDICATION
     Dosage: UNK UNK, QD (STARTED IN THE LAST 3 MONTHS OF THE TREATMENT TILL FINISHING THE PACKAGE AFTER STOPPING
     Route: 065
  3. BONE CARE [Concomitant]
     Active Substance: ATRACTYLODES LANCEA ROOT
     Indication: PRODUCT USED FOR UNKNOWN INDICATION
     Dosage: UNK UNK, QD(STARTED WITH OMNITROPE AND STOPPED AFTER 6 MONTHS)
     Route: 065
  4. DELTAVIT [Concomitant]
     Indication: PRODUCT USED FOR UNKNOWN INDICATION
     Dosage: UNK UNK, QD (BOTH STARTING AFTER 6 MONTHS OF STARTING THE OMNITROPE AND TILL 2 MONTHS BEFORE STOPPIN
     Route: 048
  5. KEROVIT [Concomitant]
     Indication: PRODUCT USED FOR UNKNOWN INDICATION
     Dosage: UNK UNK, QD (STARTED WITH THE OMNITROPE AND STOPPED AFTER 6 MONTHS THEN RETOOK IN THE LAST 3 MONTHS
     Route: 065
  6. OMNITROPE [Suspect]
     Active Substance: SOMATROPIN
     Indication: GROWTH HORMONE DEFICIENCY
     Dosage: UNK
     Route: 065
     Dates: start: 20180904, end: 20200422
  7. ENSURE [Concomitant]
     Active Substance: AMINO ACIDS\DEXTROSE\ELECTROLYTES NOS\SOYBEAN OIL\VITAMINS
     Indication: PRODUCT USED FOR UNKNOWN INDICATION
     Dosage: 5 DF, QD (SINCE STARTING THE OMNITROPE AND TILL 2 OR 3 MONTHS BEFORE STOPPING)
     Route: 065

REACTIONS (3)
  - Bone pain [Recovered/Resolved]
  - Ligament pain [Not Recovered/Not Resolved]
  - Intentional dose omission [Not Recovered/Not Resolved]

NARRATIVE: CASE EVENT DATE: 20180904
